FAERS Safety Report 15985898 (Version 2)
Quarter: 2019Q4

REPORT INFORMATION
  Report Type: Spontaneous
  Country: US (occurrence: US)
  Receive Date: 20190220
  Receipt Date: 20191004
  Transmission Date: 20200122
  Serious: Yes (Hospitalization, Other)
  Sender: FDA-Public Use
  Company Number: US-ELI_LILLY_AND_COMPANY-US201902008139

PATIENT
  Sex: Male

DRUGS (4)
  1. HUMALOG [Suspect]
     Active Substance: INSULIN LISPRO
     Indication: TYPE 2 DIABETES MELLITUS
     Dosage: 90 U, PRN
     Route: 058
  2. GLIPIZIDE. [Concomitant]
     Active Substance: GLIPIZIDE
     Indication: TYPE 2 DIABETES MELLITUS
  3. TOUJEO [Concomitant]
     Active Substance: INSULIN GLARGINE
     Indication: TYPE 2 DIABETES MELLITUS
     Dosage: 80 U, DAILY
  4. IBUPROFEN. [Suspect]
     Active Substance: IBUPROFEN
     Indication: PRODUCT USED FOR UNKNOWN INDICATION
     Dosage: UNK UNK, UNKNOWN
     Route: 065

REACTIONS (15)
  - Fall [Unknown]
  - Fall [Unknown]
  - Sleep disorder due to a general medical condition [Unknown]
  - Pancreatitis [Recovered/Resolved]
  - Cartilage injury [Unknown]
  - Fall [Unknown]
  - Cartilage injury [Unknown]
  - Head injury [Recovered/Resolved]
  - Glycosylated haemoglobin increased [Not Recovered/Not Resolved]
  - Cartilage injury [Unknown]
  - Drug hypersensitivity [Unknown]
  - Fall [Unknown]
  - Cartilage injury [Not Recovered/Not Resolved]
  - Haematoma [Unknown]
  - Weight increased [Unknown]

NARRATIVE: CASE EVENT DATE: 20170427
